FAERS Safety Report 8287937-0 (Version None)
Quarter: 2012Q2

REPORT INFORMATION
  Report Type: 
  Country: None (occurrence: None)
  Receive Date: 20120411
  Receipt Date: 20120411
  Transmission Date: 20120825
  Serious: No
  Sender: FDA-Public Use
  Company Number: None

PATIENT
  Age: 56 Year
  Sex: Male

DRUGS (1)
  1. ZELBORAF [Suspect]
     Dosage: 960 BID PO
     Route: 048
     Dates: start: 20120316, end: 20120409

REACTIONS (1)
  - HEART RATE IRREGULAR [None]
